FAERS Safety Report 11756848 (Version 2)
Quarter: 2015Q4

REPORT INFORMATION
  Report Type: Spontaneous
  Country: IT (occurrence: IT)
  Receive Date: 20151120
  Receipt Date: 20151203
  Transmission Date: 20160304
  Serious: Yes (Other)
  Sender: FDA-Public Use
  Company Number: IT-ACCORD-029118

PATIENT
  Age: 69 Year
  Sex: Female
  Weight: 65 kg

DRUGS (3)
  1. AVASTIN [Concomitant]
     Active Substance: BEVACIZUMAB
     Dosage: STRENGTH: 400 MG, ?ALSO RECEIVED 320 MG FROM 06-NOV-2014 TO 19-OCT-2015.
     Route: 042
  2. OXALIPLATINO SUN [Suspect]
     Active Substance: OXALIPLATIN
     Indication: COLON CANCER STAGE IV
     Dosage: STRENGTH: 5 MG\ML, 97 MG FROM 06-NOV-2014 TO 15-OCT-2015, DURATION: 344 DAY
     Route: 042
  3. FLUOROURACIL. [Suspect]
     Active Substance: FLUOROURACIL
     Indication: RECTAL CANCER METASTATIC
     Dosage: ALSO RECEIVED 480 MG CYCLICAL VIA INTRAVENOUS BOLUS. RECEIVED 3214 MG CYCLICAL VIA INTRAVENOUS DRIP
     Route: 041
     Dates: start: 20141106

REACTIONS (3)
  - Asthenia [Unknown]
  - Neuralgia [Unknown]
  - Palmar-plantar erythrodysaesthesia syndrome [Not Recovered/Not Resolved]

NARRATIVE: CASE EVENT DATE: 20150206
